FAERS Safety Report 7583600-X (Version None)
Quarter: 2011Q2

REPORT INFORMATION
  Report Type: 
  Country: None (occurrence: None)
  Receive Date: 20110630
  Receipt Date: 20110623
  Transmission Date: 20111010
  Serious: Yes (Other)
  Sender: FDA-Public Use
  Company Number: A0932732A

PATIENT
  Age: 31 Year
  Sex: Female

DRUGS (2)
  1. NO CONCURRENT MEDICATION [Concomitant]
  2. LAMOTRIGINE [Suspect]
     Indication: BIPOLAR DISORDER
     Dosage: 300MG PER DAY
     Route: 048
     Dates: start: 20060101

REACTIONS (9)
  - COLOUR BLINDNESS [None]
  - VISUAL IMPAIRMENT [None]
  - IMPAIRED DRIVING ABILITY [None]
  - DIPLOPIA [None]
  - NAUSEA [None]
  - VOMITING [None]
  - DISORIENTATION [None]
  - GAIT DISTURBANCE [None]
  - BALANCE DISORDER [None]
